FAERS Safety Report 7582234-0 (Version None)
Quarter: 2011Q2

REPORT INFORMATION
  Report Type: 
  Country: None (occurrence: None)
  Receive Date: 20110622
  Receipt Date: 20110607
  Transmission Date: 20111010
  Serious: Yes (Other)
  Sender: FDA-Public Use
  Company Number: AUR-APL-2011-02837

PATIENT
  Age: 80 Year
  Sex: Male

DRUGS (10)
  1. SPIRONOLACTONE [Concomitant]
  2. BISOPROLOL FUMARATE [Concomitant]
  3. SIMVASTATIN [Suspect]
     Indication: PRODUCT USED FOR UNKNOWN INDICATION
     Dosage: 40 MG (40 MG, 1 IN 1 D)
  4. BUMETANIDE [Concomitant]
  5. ASPIRIN [Concomitant]
  6. HEPARIN [Concomitant]
  7. INSULIN (INSULIN) [Concomitant]
  8. RANITIDINE [Concomitant]
  9. VALSARTAN [Concomitant]
  10. AMIODARONE HCL [Suspect]
     Indication: PRODUCT USED FOR UNKNOWN INDICATION
     Dosage: 200 MG, 1 D

REACTIONS (6)
  - RHABDOMYOLYSIS [None]
  - RENAL IMPAIRMENT [None]
  - HYPERKALAEMIA [None]
  - DRUG INTERACTION [None]
  - PAIN [None]
  - OEDEMA PERIPHERAL [None]
